FAERS Safety Report 13810162 (Version 4)
Quarter: 2017Q4

REPORT INFORMATION
  Report Type: Spontaneous
  Country: FR (occurrence: FR)
  Receive Date: 20170728
  Receipt Date: 20171115
  Transmission Date: 20180320
  Serious: Yes (Death, Other)
  Sender: FDA-Public Use
  Company Number: FR-GLAXOSMITHKLINE-FR2017GSK117063

PATIENT
  Age: 34 Year
  Sex: Female

DRUGS (19)
  1. LAMICTAL [Suspect]
     Active Substance: LAMOTRIGINE
     Indication: EPILEPSY
     Dosage: 100 MG, BID
     Route: 048
     Dates: start: 20170321
  2. KLEAN-PREP [Concomitant]
     Active Substance: ELECTROLYTES NOS\POLYETHYLENE GLYCOL 3350
     Indication: CONSTIPATION
     Dosage: 1 DF, PRN
     Route: 048
     Dates: start: 20170216, end: 20170519
  3. LANSOYL [Concomitant]
     Active Substance: MINERAL OIL
     Indication: CONSTIPATION
     Dosage: 2 DF, BID
     Route: 048
     Dates: start: 20170327
  4. FUMAFER [Concomitant]
     Active Substance: FERROUS FUMARATE
     Indication: IRON DEFICIENCY
     Dosage: 1 DF, QD
     Route: 048
     Dates: start: 20160725
  5. VALIUM [Suspect]
     Active Substance: DIAZEPAM
     Dosage: 20 UNK, TID
     Route: 048
     Dates: start: 20170609
  6. VALIUM [Suspect]
     Active Substance: DIAZEPAM
     Dosage: 10 UNK, TID
     Route: 048
     Dates: start: 20170616
  7. OFLOCET [Concomitant]
     Active Substance: OFLOXACIN
     Indication: URINARY TRACT INFECTION
     Dosage: UNK
     Dates: start: 20170608, end: 20170610
  8. MOVICOL [Concomitant]
     Active Substance: POLYETHYLENE GLYCOL 3350\POTASSIUM CHLORIDE\SODIUM BICARBONATE\SODIUM CHLORIDE
     Indication: CONSTIPATION
     Dosage: 2 DF, TID
     Route: 048
     Dates: start: 20170313
  9. SPASFON [Concomitant]
     Active Substance: PHLOROGLUCINOL\1,3,5-TRIMETHOXYBENZENE
     Indication: ABDOMINAL PAIN
     Dosage: 2 DF, TID
     Route: 048
     Dates: start: 20170130
  10. LEVOTHYROX [Concomitant]
     Active Substance: LEVOTHYROXINE
     Indication: HYPOTHYROIDISM
     Dosage: 1 DF, QD (75MG)
     Route: 048
     Dates: start: 20170130
  11. ARTANE [Suspect]
     Active Substance: TRIHEXYPHENIDYL HYDROCHLORIDE
     Indication: EXTRAPYRAMIDAL DISORDER
     Dosage: 5 MG, TID
     Route: 048
     Dates: start: 20170428
  12. DEXERYL (GLYCEROL + LIQUID PARAFFIN + VASELINE) [Concomitant]
     Indication: PRODUCT USED FOR UNKNOWN INDICATION
     Dosage: 1 DF, QD
     Route: 003
     Dates: start: 20170130
  13. NOZINAN [Concomitant]
     Active Substance: LEVOMEPROMAZINE
     Indication: PRODUCT USED FOR UNKNOWN INDICATION
     Dosage: UNK
     Dates: end: 20170604
  14. LOVENOX [Suspect]
     Active Substance: ENOXAPARIN SODIUM
     Indication: PRODUCT USED FOR UNKNOWN INDICATION
     Dosage: 4000 IU, QD
     Route: 058
     Dates: start: 20170504
  15. VALIUM [Suspect]
     Active Substance: DIAZEPAM
     Indication: PSYCHOTIC DISORDER
     Dosage: 10 UNK, Z
     Route: 048
     Dates: start: 20170529
  16. LEPONEX [Suspect]
     Active Substance: CLOZAPINE
     Indication: PSYCHOTIC DISORDER
     Dosage: 450 MG, BID
     Route: 048
     Dates: start: 20170509
  17. TERALITHE [Suspect]
     Active Substance: LITHIUM CARBONATE
     Indication: PSYCHOTIC DISORDER
     Dosage: 400 MG, Z
     Route: 048
     Dates: start: 20170511
  18. TERALITHE [Suspect]
     Active Substance: LITHIUM CARBONATE
     Dosage: 1.5 DF, QD
     Route: 048
     Dates: start: 20170529
  19. TERALITHE [Suspect]
     Active Substance: LITHIUM CARBONATE
     Dosage: 2 DF, QD
     Route: 048
     Dates: start: 20170531

REACTIONS (2)
  - Sudden death [Fatal]
  - Cardio-respiratory arrest [Fatal]

NARRATIVE: CASE EVENT DATE: 20170622
